FAERS Safety Report 8987047 (Version 1)
Quarter: 2012Q4

REPORT INFORMATION
  Report Type: Spontaneous
  Country: US (occurrence: None)
  Receive Date: 20121217
  Receipt Date: 20121217
  Transmission Date: 20130627
  Serious: Yes (Hospitalization)
  Sender: FDA-Public Use
  Company Number: MOZO-1000740

PATIENT
  Age: 46 Year
  Sex: Male
  Weight: 87.5 kg

DRUGS (11)
  1. MOZOBIL [Suspect]
     Indication: GLIOBLASTOMA
     Dosage: 240 mcg/kg, qd, days 1-21, subcutaneous
     Dates: start: 20120719, end: 20120808
  2. BEVACIZUMAB [Suspect]
     Indication: GLIOBLASTOMA
     Dosage: 10 mg/kg, q2w, days 1 and 15. intravenous
     Route: 042
     Dates: start: 20120719, end: 20120802
  3. COLACE (DOCUSATE SODIUM) [Concomitant]
  4. DEXAMETHASONE (DEXAMETHASONE) [Concomitant]
  5. DIVALPROEX SODIUM (VALPROATE SEMISODIUM) [Concomitant]
  6. PEPCID (FAMOTIDINE) [Concomitant]
  7. SENNA (SENNA ALEXANDRINA) [Concomitant]
  8. TYLENOL (PARACETAMOL) [Concomitant]
  9. KLONOPIN (CLONAZEPAM) [Concomitant]
  10. LORAZEPAM (LORAZEPAM) [Concomitant]
  11. PHOSPHA NEUTRAL [Concomitant]

REACTIONS (4)
  - Perirectal abscess [None]
  - Anorectal infection [None]
  - Anal fistula [None]
  - Rectal haemorrhage [None]
